FAERS Safety Report 10861273 (Version 2)
Quarter: 2015Q1

REPORT INFORMATION
  Report Type: Spontaneous
  Country: FR (occurrence: FR)
  Receive Date: 20150224
  Receipt Date: 20150309
  Transmission Date: 20150721
  Serious: Yes (Other)
  Sender: FDA-Public Use
  Company Number: FR-JNJFOC-20150214676

PATIENT
  Sex: Male

DRUGS (2)
  1. ZYTIGA [Suspect]
     Active Substance: ABIRATERONE ACETATE
     Indication: PROSTATE CANCER
     Dosage: 2 TABLETS OF 250 MG
     Route: 048
  2. ZYTIGA [Suspect]
     Active Substance: ABIRATERONE ACETATE
     Indication: PROSTATE CANCER
     Dosage: 4 TABLETS OF 250 MG
     Route: 048

REACTIONS (5)
  - Aggression [Recovered/Resolved]
  - Drug prescribing error [Unknown]
  - Depression [Recovered/Resolved]
  - Off label use [Unknown]
  - Mood swings [Recovered/Resolved]
